FAERS Safety Report 24360829 (Version 1)
Quarter: 2024Q3

REPORT INFORMATION
  Report Type: Other
  Country: CA (occurrence: CA)
  Receive Date: 20240925
  Receipt Date: 20240925
  Transmission Date: 20241016
  Serious: Yes (Other)
  Sender: LUPIN
  Company Number: CA-LUPIN PHARMACEUTICALS INC.-2024-09413

PATIENT

DRUGS (1)
  1. CEPHALEXIN [Suspect]
     Active Substance: CEPHALEXIN
     Indication: Influenza
     Dosage: UNK
     Route: 065

REACTIONS (5)
  - Diplopia [Recovered/Resolved]
  - Fatigue [Recovered/Resolved]
  - Hallucination, visual [Recovered/Resolved]
  - Panic reaction [Recovered/Resolved]
  - Pyrexia [Recovered/Resolved]
